FAERS Safety Report 8549531-3 (Version None)
Quarter: 2012Q3

REPORT INFORMATION
  Report Type: 
  Country: None (occurrence: None)
  Receive Date: 20120730
  Receipt Date: 20120724
  Transmission Date: 20120928
  Serious: Yes (Other)
  Sender: FDA-Public Use
  Company Number: US-PFIZER INC-2012143353

PATIENT
  Sex: Male

DRUGS (17)
  1. NEURONTIN [Concomitant]
     Dosage: 600
  2. DIGOXIN [Concomitant]
     Dosage: 0.125
  3. TRILAX [Concomitant]
     Dosage: 135
  4. ASPIRIN [Concomitant]
     Dosage: 325
  5. COUMADIN [Concomitant]
     Dosage: 7.5
  6. DRISDOL [Concomitant]
     Dosage: 50000
  7. CO-Q-10 [Concomitant]
     Dosage: UNK
  8. FISH OIL [Concomitant]
     Dosage: UNK
  9. LASIX [Concomitant]
     Dosage: 40
  10. METFORMIN [Concomitant]
     Dosage: 1000
  11. TYLENOL [Concomitant]
     Dosage: UNK
  12. SOTALOL [Concomitant]
     Dosage: 160
  13. ADVAIR DISKUS 100/50 [Concomitant]
     Dosage: UNK
  14. INSULIN [Concomitant]
     Indication: DIABETES MELLITUS
  15. SUTENT [Suspect]
     Indication: METASTATIC RENAL CELL CARCINOMA
     Dosage: 37.5 MG, 1X/DAY
     Route: 048
  16. ALDACTONE [Concomitant]
     Dosage: 25
  17. SIMVASTATIN [Concomitant]
     Dosage: 20

REACTIONS (5)
  - PNEUMONIA [None]
  - MUCOSAL INFLAMMATION [None]
  - LEUKOPENIA [None]
  - ANAEMIA [None]
  - DIABETES MELLITUS [None]
